FAERS Safety Report 16109927 (Version 1)
Quarter: 2019Q1

REPORT INFORMATION
  Report Type: Spontaneous
  Country: US (occurrence: US)
  Receive Date: 20190325
  Receipt Date: 20190325
  Transmission Date: 20190418
  Serious: No
  Sender: FDA-Public Use
  Company Number: US-AUROBINDO-AUR-APU-2018-007651

PATIENT
  Sex: Male
  Weight: 105.69 kg

DRUGS (2)
  1. GABAPENTIN CAPSULES 300 MG [Suspect]
     Active Substance: GABAPENTIN
     Indication: SCIATIC NERVE INJURY
     Dosage: 300 MILLIGRAM,THREE TIMES A DAY
     Route: 065
     Dates: start: 20161219
  2. GABAPENTIN CAPSULES 300 MG [Suspect]
     Active Substance: GABAPENTIN
     Dosage: 1500 MILLIGRAM
     Route: 065

REACTIONS (1)
  - Drug ineffective [Unknown]
